FAERS Safety Report 7903432-X (Version None)
Quarter: 2011Q4

REPORT INFORMATION
  Report Type: 
  Country: None (occurrence: None)
  Receive Date: 20111108
  Receipt Date: 20111108
  Transmission Date: 20120403
  Serious: Yes (Other)
  Sender: FDA-Public Use
  Company Number: None

PATIENT
  Sex: Female
  Weight: 59.4212 kg

DRUGS (1)
  1. CLIMARA [Suspect]
     Indication: MENOPAUSE
     Dosage: 0.75 MG PATCH
     Route: 062
     Dates: start: 20070101, end: 20080101

REACTIONS (3)
  - PRODUCT ADHESION ISSUE [None]
  - SKIN IRRITATION [None]
  - DRUG DOSE OMISSION [None]
